FAERS Safety Report 8383957-6 (Version None)
Quarter: 2012Q2

REPORT INFORMATION
  Report Type: 
  Country: None (occurrence: None)
  Receive Date: 20120524
  Receipt Date: 20120510
  Transmission Date: 20120825
  Serious: Yes (Hospitalization)
  Sender: FDA-Public Use
  Company Number: US-ROCHE-1063678

PATIENT
  Sex: Male
  Weight: 75.29 kg

DRUGS (7)
  1. COPEGUS [Suspect]
     Indication: HEPATITIS C
     Dates: start: 20111020, end: 20120325
  2. LIDEX [Concomitant]
     Dates: start: 20120112, end: 20120202
  3. BLINDED ALISPORIVIR [Suspect]
     Indication: HEPATITIS C
     Dates: start: 20111020, end: 20120325
  4. ACYCLOVIR [Concomitant]
     Dates: start: 20120105, end: 20120112
  5. GABAPENTIN [Concomitant]
     Dates: start: 20111110
  6. FOSAMAX [Concomitant]
     Dates: start: 20111110
  7. PEGASYS [Suspect]
     Indication: HEPATITIS C
     Dates: start: 20111020, end: 20120315

REACTIONS (3)
  - PANCREATITIS [None]
  - DIABETIC KETOACIDOSIS [None]
  - PNEUMONIA [None]
